FAERS Safety Report 15320911 (Version 1)
Quarter: 2018Q3

REPORT INFORMATION
  Report Type: Spontaneous
  Country: IT (occurrence: IT)
  Receive Date: 20180827
  Receipt Date: 20180827
  Transmission Date: 20181010
  Serious: Yes (Other)
  Sender: FDA-Public Use
  Company Number: IT-AUROBINDO-AUR-APL-2018-042999

PATIENT
  Age: 18 Year
  Sex: Female

DRUGS (5)
  1. IBUPROFEN FILM?COATED TABLETS [Suspect]
     Active Substance: IBUPROFEN
     Indication: ANTIINFLAMMATORY THERAPY
     Dosage: 600 MILLIGRAMS, IN TOTAL
     Route: 048
  2. PREDNISONE. [Suspect]
     Active Substance: PREDNISONE
     Indication: ANTIINFLAMMATORY THERAPY
     Dosage: 25 MILLIGRAM, IN TOTAL
     Route: 048
  3. DEFLAZACORT [Suspect]
     Active Substance: DEFLAZACORT
     Indication: ANTIINFLAMMATORY THERAPY
     Dosage: 30 MILLIGRAMS, IN TOTAL
     Route: 048
  4. PARACETAMOL [Concomitant]
     Active Substance: ACETAMINOPHEN
     Indication: PYREXIA
     Dosage: 2 GRAM, IN TOTAL
     Route: 048
  5. METHYLPREDNISOLONE. [Suspect]
     Active Substance: METHYLPREDNISOLONE
     Indication: ANTIINFLAMMATORY THERAPY
     Dosage: 16 MILLIGRAMS, IN TOTAL
     Route: 048

REACTIONS (4)
  - Vomiting [Unknown]
  - Intentional self-injury [Unknown]
  - Dyspepsia [Unknown]
  - Intentional overdose [Unknown]

NARRATIVE: CASE EVENT DATE: 20180809
